FAERS Safety Report 24843632 (Version 2)
Quarter: 2025Q3

REPORT INFORMATION
  Report Type: Spontaneous
  Country: EU (occurrence: EU)
  Receive Date: 20250115
  Receipt Date: 20250803
  Transmission Date: 20251020
  Serious: Yes (Death, Other)
  Sender: ALEXION PHARMACEUTICALS
  Company Number: EU-AstraZeneca-CH-00783737A

PATIENT
  Age: 72 Year
  Sex: Male

DRUGS (2)
  1. LYNPARZA [Suspect]
     Active Substance: OLAPARIB
     Indication: Prostate cancer
     Dosage: 600 MILLIGRAM, BID
  2. ABIRATERONE ACETATE [Suspect]
     Active Substance: ABIRATERONE ACETATE
     Indication: Product used for unknown indication
     Dosage: 1000 MILLIGRAM, BID

REACTIONS (1)
  - Death [Fatal]

NARRATIVE: CASE EVENT DATE: 20241201
